FAERS Safety Report 11102039 (Version 2)
Quarter: 2015Q2

REPORT INFORMATION
  Report Type: Spontaneous
  Country: US (occurrence: US)
  Receive Date: 20150511
  Receipt Date: 20150526
  Transmission Date: 20150821
  Serious: No
  Sender: FDA-Public Use
  Company Number: US-AMGEN-USASP2015043714

PATIENT
  Age: 61 Year
  Sex: Female

DRUGS (2)
  1. ENBREL [Suspect]
     Active Substance: ETANERCEPT
     Indication: RHEUMATOID ARTHRITIS
     Dosage: 50 MG, QWK
     Route: 065
     Dates: start: 20010401
  2. METHOTREXATE [Concomitant]
     Active Substance: METHOTREXATE
     Dosage: 45 MG, QWK

REACTIONS (2)
  - Device malfunction [Recovered/Resolved]
  - Muscle injury [Recovered/Resolved]

NARRATIVE: CASE EVENT DATE: 20150504
